FAERS Safety Report 6493659-9 (Version None)
Quarter: 2009Q4

REPORT INFORMATION
  Report Type: 
  Country: None (occurrence: None)
  Receive Date: 20091214
  Receipt Date: 20091204
  Transmission Date: 20100525
  Serious: No
  Sender: FDA-Public Use
  Company Number: B0601005A

PATIENT
  Sex: Male
  Weight: 34 kg

DRUGS (4)
  1. RELENZA [Suspect]
     Indication: INFLUENZA
     Dosage: 10MG TWICE PER DAY
     Route: 055
     Dates: start: 20091024, end: 20091028
  2. ACETAMINOPHEN [Concomitant]
     Dosage: 1500MG PER DAY
     Route: 048
     Dates: start: 20091024
  3. SOLDEM [Concomitant]
     Dosage: 500ML PER DAY
     Route: 042
     Dates: start: 20091024
  4. CHINESE MEDICINE [Concomitant]
     Dosage: 4.8G PER DAY
     Route: 048
     Dates: start: 20091024, end: 20091027

REACTIONS (1)
  - VISUAL IMPAIRMENT [None]
